FAERS Safety Report 8483301-X (Version None)
Quarter: 2012Q3

REPORT INFORMATION
  Report Type: 
  Country: None (occurrence: None)
  Receive Date: 20120702
  Receipt Date: 20120620
  Transmission Date: 20120928
  Serious: Yes (Other)
  Sender: FDA-Public Use
  Company Number: JP-VERTEX PHARMACEUTICALS INC.-AE-2012-009401

PATIENT
  Age: 39 Year
  Sex: Male

DRUGS (14)
  1. TELAVIC (TELAPREVIR) [Suspect]
     Indication: HEPATITIS C
     Route: 048
     Dates: start: 20120305
  2. PEGINTERFERON ALFA-2B [Concomitant]
     Indication: HEPATITIS C
     Route: 058
     Dates: start: 20120305
  3. RIBAVIRIN [Concomitant]
     Route: 048
     Dates: start: 20120320
  4. FEBURIC [Concomitant]
     Route: 048
  5. PREDNISOLONE SODIUM SUCCINATE INJ [Concomitant]
     Route: 048
     Dates: start: 20120325, end: 20120329
  6. PREDNISOLONE SODIUM SUCCINATE INJ [Concomitant]
     Route: 048
     Dates: start: 20120320, end: 20120324
  7. PEGINTERFERON ALFA-2B [Concomitant]
     Route: 058
     Dates: end: 20120507
  8. PEGINTERFERON ALFA-2B [Concomitant]
     Route: 058
     Dates: start: 20120514
  9. FEBURIC [Concomitant]
     Route: 048
     Dates: start: 20120313
  10. OLOPATADINE HCL [Concomitant]
     Route: 048
     Dates: start: 20120312
  11. OLOPATADINE HCL [Concomitant]
     Route: 048
  12. PREDNISOLONE SODIUM SUCCINATE INJ [Concomitant]
     Route: 048
     Dates: start: 20120315, end: 20120319
  13. RABEPRAZOLE SODIUM [Concomitant]
     Route: 048
     Dates: start: 20120416
  14. RIBAVIRIN [Concomitant]
     Indication: HEPATITIS C
     Route: 048
     Dates: start: 20120305, end: 20120319

REACTIONS (1)
  - NEUTROPHIL COUNT DECREASED [None]
